FAERS Safety Report 15275908 (Version 1)
Quarter: 2018Q3

REPORT INFORMATION
  Report Type: Spontaneous
  Country: US (occurrence: US)
  Receive Date: 20180727
  Receipt Date: 20180727
  Transmission Date: 20181010
  Serious: No
  Sender: FDA-Public Use
  Company Number: None

PATIENT
  Age: 33 Year
  Sex: Male

DRUGS (10)
  1. IVABRADINE [Suspect]
     Active Substance: IVABRADINE
     Indication: SUPRAVENTRICULAR TACHYCARDIA
     Route: 048
     Dates: start: 20180525, end: 20180526
  2. VANCOMYCIN [Concomitant]
     Active Substance: VANCOMYCIN
  3. BUDESONIDE. [Concomitant]
     Active Substance: BUDESONIDE
  4. PREDNISONE. [Concomitant]
     Active Substance: PREDNISONE
  5. CASPOFUNGIN [Concomitant]
     Active Substance: CASPOFUNGIN
  6. LANSOPRAZOLE. [Concomitant]
     Active Substance: LANSOPRAZOLE
  7. LEVOFLOXACIN. [Concomitant]
     Active Substance: LEVOFLOXACIN
  8. VALACYCLOVIR [Concomitant]
     Active Substance: VALACYCLOVIR HYDROCHLORIDE
  9. DAPSONE. [Concomitant]
     Active Substance: DAPSONE
  10. POTASSIUM CHLORIDE. [Concomitant]
     Active Substance: POTASSIUM CHLORIDE

REACTIONS (2)
  - Heart rate increased [None]
  - Atrial fibrillation [None]

NARRATIVE: CASE EVENT DATE: 20180526
